FAERS Safety Report 4337745-8 (Version None)
Quarter: 2004Q2

REPORT INFORMATION
  Report Type: 
  Country: None (occurrence: None)
  Receive Date: 20040408
  Receipt Date: 20040120
  Transmission Date: 20050107
  Serious: Yes (Life-Threatening, Hospitalization, Disabling)
  Sender: FDA-Public Use
  Company Number: 2003AP03382

PATIENT
  Age: 77 Year
  Sex: Male
  Weight: 79 kg

DRUGS (4)
  1. IRESSA [Suspect]
     Indication: PROSTATE CANCER
     Dates: start: 20020902
  2. RAVOTRIL [Concomitant]
  3. ENALAPRIL MALEATE [Concomitant]
  4. ACETAMINOPHEN [Concomitant]

REACTIONS (6)
  - ANAEMIA [None]
  - HAEMATURIA [None]
  - HYPOTENSION [None]
  - RENAL IMPAIRMENT [None]
  - STAPHYLOCOCCAL INFECTION [None]
  - URINARY TRACT INFECTION [None]
